FAERS Safety Report 23870987 (Version 1)
Quarter: 2024Q2

REPORT INFORMATION
  Report Type: Spontaneous
  Country: GB (occurrence: GB)
  Receive Date: 20240518
  Receipt Date: 20240518
  Transmission Date: 20240716
  Serious: Yes (Other)
  Sender: FDA-Public Use
  Company Number: GB-MHRA-TPP15605956C1672377YC1714466609598

PATIENT
  Age: 70 Year
  Sex: Female
  Weight: 96 kg

DRUGS (12)
  1. AMOXICILLIN [Suspect]
     Active Substance: AMOXICILLIN
     Indication: Product used for unknown indication
     Dosage: UNK
     Route: 065
  2. ALOGLIPTIN [Concomitant]
     Active Substance: ALOGLIPTIN
     Indication: Product used for unknown indication
     Dosage: 1 DOSAGE FORM, ONCE A DAY
     Route: 065
     Dates: start: 20231031
  3. APIXABAN [Concomitant]
     Active Substance: APIXABAN
     Indication: Product used for unknown indication
     Dosage: 1 DOSAGE FORM, TWO TIMES A DAY
     Route: 065
     Dates: start: 20240205
  4. FAMOTIDINE [Concomitant]
     Active Substance: FAMOTIDINE
     Indication: Product used for unknown indication
     Dosage: 1 DOSAGE FORM, ONCE A DAY, NIGHT
     Route: 065
     Dates: start: 20240205
  5. FUSIDIC ACID [Concomitant]
     Active Substance: FUSIDIC ACID
     Indication: Product used for unknown indication
     Dosage: 1 DOSAGE FORM, ONCE A DAY
     Route: 065
     Dates: start: 20240409
  6. BUTYLSCOPOLAMINE BROMIDE [Concomitant]
     Active Substance: BUTYLSCOPOLAMINE BROMIDE
     Indication: Gastrointestinal pain
     Dosage: 2 DOSAGE FORM, FOUR TIMES/DAY, AS NEEDED
     Route: 065
     Dates: start: 20240308
  7. ACETAMINOPHEN [Concomitant]
     Active Substance: ACETAMINOPHEN
     Indication: Product used for unknown indication
     Dosage: UNK, ONE TO TWO TABLETS UP TO FOUR TIMES A DAY MAXIM...
     Route: 065
     Dates: start: 20230919
  8. ALBUTEROL [Concomitant]
     Active Substance: ALBUTEROL
     Indication: Wheezing
     Dosage: 2 DOSAGE FORM, PUFFS
     Route: 065
     Dates: start: 20221011, end: 20240319
  9. SIMVASTATIN [Concomitant]
     Active Substance: SIMVASTATIN
     Indication: Product used for unknown indication
     Dosage: 1 DOSAGE FORM, ONCE A DAY, NIGHT
     Route: 065
     Dates: start: 20240205
  10. Sukkarto sr [Concomitant]
     Indication: Product used for unknown indication
     Dosage: 1 DOSAGE FORM, ONCE A DAY
     Route: 065
     Dates: start: 20231031
  11. Zerobase [Concomitant]
     Indication: Product used for unknown indication
     Dosage: UNK, USE AS SOAP SUBSTITUTE AND APPLY AS  MOISTURISE...
     Route: 065
     Dates: start: 20230221
  12. ZERODERM [Concomitant]
     Indication: Product used for unknown indication
     Dosage: UNK, AS AN EMOLLIENT, APPLY TO THE AFFECTED AREA AS ...
     Route: 065
     Dates: start: 20240229, end: 20240328

REACTIONS (2)
  - Swollen tongue [Unknown]
  - Rash [Recovering/Resolving]
